FAERS Safety Report 23351206 (Version 1)
Quarter: 2023Q4

REPORT INFORMATION
  Report Type: Report from Study
  Country: BR (occurrence: BR)
  Receive Date: 20231229
  Receipt Date: 20231229
  Transmission Date: 20240109
  Serious: Yes (Hospitalization, Other)
  Sender: FDA-Public Use
  Company Number: BR-BAYER-2023A179604

PATIENT
  Age: 57 Year
  Sex: Male

DRUGS (5)
  1. NEXAVAR [Suspect]
     Active Substance: SORAFENIB
     Indication: Thyroid cancer
     Dosage: 160 MG, QD
     Dates: start: 20230227
  2. HYDROCHLOROTHIAZIDE [Concomitant]
     Active Substance: HYDROCHLOROTHIAZIDE
     Indication: Hypertension
     Dosage: 1 TABLET A DAY
  3. LOSARTAN [Concomitant]
     Active Substance: LOSARTAN
     Indication: Hypertension
     Dosage: 2 TABLETS A DAY
  4. LOPERAMIDE [Concomitant]
     Active Substance: LOPERAMIDE
     Indication: Diarrhoea
     Dosage: UNK
  5. DUTASTERIDE\TAMSULOSIN [Concomitant]
     Active Substance: DUTASTERIDE\TAMSULOSIN
     Dosage: TAKES 1 TABLET AT NOON INDICATED FOR PROSTATE

REACTIONS (2)
  - Spinal cord injury [Not Recovered/Not Resolved]
  - Gait inability [Not Recovered/Not Resolved]

NARRATIVE: CASE EVENT DATE: 20230101
